FAERS Safety Report 16224330 (Version 1)
Quarter: 2019Q2

REPORT INFORMATION
  Report Type: Spontaneous
  Country: IT (occurrence: IT)
  Receive Date: 20190422
  Receipt Date: 20190422
  Transmission Date: 20190711
  Serious: Yes (Other)
  Sender: FDA-Public Use
  Company Number: IT-PFIZER INC-2019165536

PATIENT
  Age: 75 Year
  Sex: Male

DRUGS (5)
  1. FLUORO-URACILE [Suspect]
     Active Substance: FLUOROURACIL
     Indication: COLON CANCER
     Dosage: 501 MG, CYCLIC, EVERY 15 DAYS
     Route: 040
     Dates: start: 20181120
  2. FLUOROURACILE [Suspect]
     Active Substance: FLUOROURACIL
     Indication: COLON CANCER
     Dosage: 750 MG, CONTINUOUS INFUSION (22 HOURS), CYCLIC, EVERY 15 DAYS
     Route: 041
     Dates: start: 20181120
  3. OXALIPLATIN. [Suspect]
     Active Substance: OXALIPLATIN
     Indication: COLON CANCER
     Dosage: 106 MG, CYCLIC, EVERY 15 DAYS
     Route: 042
     Dates: start: 20181120
  4. ERBITUX [Suspect]
     Active Substance: CETUXIMAB
     Indication: COLON CANCER
     Dosage: 447 MG, WEEKLY
     Route: 042
     Dates: start: 20181108
  5. FOLINIC ACID [Concomitant]
     Active Substance: LEUCOVORIN
     Indication: COLON CANCER
     Dosage: 358 MG, CYCLIC, EVERY 15 DAYS
     Route: 042
     Dates: start: 20181120

REACTIONS (1)
  - Neurotoxicity [Recovered/Resolved]

NARRATIVE: CASE EVENT DATE: 20190212
